FAERS Safety Report 22038407 (Version 1)
Quarter: 2023Q1

REPORT INFORMATION
  Report Type: Spontaneous
  Country: ES (occurrence: ES)
  Receive Date: 20230227
  Receipt Date: 20230227
  Transmission Date: 20230417
  Serious: Yes (Death, Hospitalization, Other)
  Sender: FDA-Public Use
  Company Number: ES-STERISCIENCE B.V.-2023-ST-000905

PATIENT
  Age: 74 Year
  Sex: Female

DRUGS (9)
  1. MIDAZOLAM [Suspect]
     Active Substance: MIDAZOLAM
     Indication: Palliative care
     Dosage: 5 MILLIGRAM, QD INFUSION
     Route: 042
  2. MIDAZOLAM [Suspect]
     Active Substance: MIDAZOLAM
     Indication: Myasthenia gravis
  3. HUMAN IMMUNOGLOBULIN G [Suspect]
     Active Substance: HUMAN IMMUNOGLOBULIN G
     Indication: Myasthenia gravis
     Dosage: PERIODIC CYCLES
     Route: 042
  4. MORPHINE [Suspect]
     Active Substance: MORPHINE
     Indication: Palliative care
     Dosage: 15 MILLIGRAM, QD, CONTINUOUS INFUSION
     Route: 042
  5. MORPHINE [Suspect]
     Active Substance: MORPHINE
     Indication: Myasthenia gravis
     Dosage: 25 MILLIGRAM, QD
     Route: 042
  6. HALOPERIDOL [Suspect]
     Active Substance: HALOPERIDOL
     Indication: Palliative care
     Dosage: 1 MILLIGRAM, QD
     Route: 042
  7. HALOPERIDOL [Suspect]
     Active Substance: HALOPERIDOL
     Indication: Myasthenia gravis
  8. OCTREOTIDE [Suspect]
     Active Substance: OCTREOTIDE
     Indication: Rales
     Dosage: 100 MICROGRAM, Q6H
     Route: 058
  9. OCTREOTIDE [Suspect]
     Active Substance: OCTREOTIDE
     Dosage: 200 MICROGRAM, Q6H
     Route: 058

REACTIONS (1)
  - Drug ineffective for unapproved indication [Fatal]
